FAERS Safety Report 23141713 (Version 1)
Quarter: 2023Q4

REPORT INFORMATION
  Report Type: Spontaneous
  Country: TR (occurrence: None)
  Receive Date: 20231103
  Receipt Date: 20231103
  Transmission Date: 20240109
  Serious: Yes (Other)
  Sender: FDA-Public Use
  Company Number: 2023A246572

PATIENT
  Age: 64 Year
  Sex: Female

DRUGS (2)
  1. SEROQUEL [Interacting]
     Active Substance: QUETIAPINE FUMARATE
     Indication: Bipolar disorder
     Dosage: 200 MG
     Route: 048
  2. VALPROIC ACID [Interacting]
     Active Substance: VALPROIC ACID

REACTIONS (2)
  - Drug interaction [Unknown]
  - Oedema peripheral [Recovered/Resolved]
